FAERS Safety Report 18261011 (Version 1)
Quarter: 2020Q3

REPORT INFORMATION
  Report Type: Spontaneous
  Country: FR (occurrence: FR)
  Receive Date: 20200914
  Receipt Date: 20200914
  Transmission Date: 20201103
  Serious: Yes (Other)
  Sender: FDA-Public Use
  Company Number: FR-TEVA-2020-FR-1825743

PATIENT
  Age: 17 Year
  Sex: Female
  Weight: 46.3 kg

DRUGS (9)
  1. HOLOXAN [Suspect]
     Active Substance: IFOSFAMIDE
     Indication: UNDIFFERENTIATED SARCOMA
     Dosage: D1 AND D2 OF THE TREATMENT = 2 DAYS EVERY 3 WEEKS, 3000MG/M2
     Route: 042
     Dates: start: 20200812
  2. BACTRIM [Suspect]
     Active Substance: SULFAMETHOXAZOLE\TRIMETHOPRIM
     Indication: INFECTION PROPHYLAXIS
     Dosage: 6 DF
     Route: 048
     Dates: start: 202006
  3. INNOHEP [Suspect]
     Active Substance: TINZAPARIN SODIUM
     Indication: THROMBOSIS PROPHYLAXIS
     Dosage: 10500 IU
     Route: 058
     Dates: start: 202006
  4. MESNA. [Suspect]
     Active Substance: MESNA
     Indication: PROPHYLAXIS
     Dosage: D1 AND D2 OF THE TREATMENT = 2 DAYS EVERY 3 WEEKS, UNIT DOSE: 1200 MG/M2
     Route: 042
     Dates: start: 20200812
  5. PLITICAN [Concomitant]
     Active Substance: ALIZAPRIDE HYDROCHLORIDE
     Indication: VOMITING
     Dosage: 1.67 MG/KG
     Route: 042
     Dates: start: 20200812
  6. METHYLPREDNISOLONE. [Concomitant]
     Active Substance: METHYLPREDNISOLONE
     Indication: VOMITING
     Dosage: 0.5 MG/KG
     Route: 042
     Dates: start: 20200812
  7. VINCRISTINE (SULFATE DE) [Suspect]
     Active Substance: VINCRISTINE SULFATE
     Indication: UNDIFFERENTIATED SARCOMA
     Dosage: ON D1, D8, D15 OF THE TREATMENT: ONCE A WEEK EVERY 3 WEEKS, UNIT DOSE: 1.5 MG/M2
     Route: 042
     Dates: start: 20200812
  8. ONDANSETRON [Suspect]
     Active Substance: ONDANSETRON
     Indication: VOMITING
     Route: 042
     Dates: start: 20200812
  9. COSMEGEN [Suspect]
     Active Substance: DACTINOMYCIN
     Indication: UNDIFFERENTIATED SARCOMA
     Dosage: DAY 1 OF THE TREATMENT = 1 DAY EVERY 3 WEEKS, 1500UG/M2
     Route: 042
     Dates: start: 20200812

REACTIONS (4)
  - Skin exfoliation [Not Recovered/Not Resolved]
  - Mucosal inflammation [Not Recovered/Not Resolved]
  - Erythema [Not Recovered/Not Resolved]
  - Tongue oedema [Not Recovered/Not Resolved]

NARRATIVE: CASE EVENT DATE: 20200813
